FAERS Safety Report 5196432-7 (Version None)
Quarter: 2006Q4

REPORT INFORMATION
  Report Type: 
  Country: None (occurrence: None)
  Receive Date: 20061222
  Receipt Date: 20061212
  Transmission Date: 20070319
  Serious: Yes (Hospitalization)
  Sender: FDA-Public Use
  Company Number: 8020489

PATIENT
  Age: 66 Year
  Sex: Male

DRUGS (4)
  1. KEPPRA [Suspect]
     Dosage: 500 MG 1/D
  2. BACLOFEN [Suspect]
     Dosage: 25 MG PO
     Route: 048
  3. NEURONTIN [Suspect]
     Dosage: 800 MG 1/D PO
     Route: 048
  4. PANTOPRAZOL [Suspect]
     Dosage: 40 MG 1/D PO
     Route: 048

REACTIONS (2)
  - ATRIAL FIBRILLATION [None]
  - WRONG DRUG ADMINISTERED [None]
